FAERS Safety Report 8330508 (Version 3)
Quarter: 2012Q4

REPORT INFORMATION
  Report Type: 
  Country: US (occurrence: US)
  Receive Date: 20120111
  Receipt Date: 20121011
  Transmission Date: 20130627
  Serious: Yes (Death, Hospitalization)
  Sender: FDA-Public Use
  Company Number: PHEH2012US000900

PATIENT
  Age: 61 Year
  Sex: Male
  Weight: 89.5 kg

DRUGS (2)
  1. ZOMETA [Suspect]
     Dosage: UNK
  2. ZOMETA [Suspect]
     Dates: start: 20110531

REACTIONS (1)
  - Death [Fatal]
